FAERS Safety Report 11677310 (Version 3)
Quarter: 2016Q1

REPORT INFORMATION
  Report Type: Spontaneous
  Country: US (occurrence: US)
  Receive Date: 20151028
  Receipt Date: 20160122
  Transmission Date: 20160525
  Serious: Yes (Disabling)
  Sender: FDA-Public Use
  Company Number: US-009507513-1510USA000465

PATIENT
  Age: 43 Year
  Sex: Female

DRUGS (2)
  1. INVEGA [Concomitant]
     Active Substance: PALIPERIDONE
     Dosage: UNK
  2. BELSOMRA [Suspect]
     Active Substance: SUVOREXANT
     Indication: INSOMNIA
     Dosage: 10 MG AT HS X10 DAYS-15MG AT HS X10DAYS
     Route: 048
     Dates: start: 20150722, end: 20150817

REACTIONS (2)
  - Somnambulism [Recovered/Resolved]
  - Sleep-related eating disorder [Recovered/Resolved]

NARRATIVE: CASE EVENT DATE: 20150723
